FAERS Safety Report 22015242 (Version 2)
Quarter: 2023Q1

REPORT INFORMATION
  Report Type: Other
  Country: DE (occurrence: None)
  Receive Date: 20230221
  Receipt Date: 20230309
  Transmission Date: 20230417
  Serious: Yes (Hospitalization)
  Sender: FDA-Public Use
  Company Number: DE-ROCHE-3285391

PATIENT
  Age: 85 Year
  Sex: Male

DRUGS (6)
  1. POLATUZUMAB VEDOTIN [Suspect]
     Active Substance: POLATUZUMAB VEDOTIN
     Indication: Follicular lymphoma
     Route: 042
     Dates: start: 20220113, end: 20220113
  2. ATORVASTATIN [Concomitant]
     Active Substance: ATORVASTATIN
  3. ESOMEPRAZOLE [Concomitant]
     Active Substance: ESOMEPRAZOLE
  4. NEBIVOLOL [Concomitant]
     Active Substance: NEBIVOLOL
  5. TAMSULOSIN [Concomitant]
     Active Substance: TAMSULOSIN
  6. VALSARTAN [Concomitant]
     Active Substance: VALSARTAN

REACTIONS (1)
  - Neoplasm progression [Recovered/Resolved]

NARRATIVE: CASE EVENT DATE: 20220115
